FAERS Safety Report 5422808-6 (Version None)
Quarter: 2007Q3

REPORT INFORMATION
  Report Type: 
  Country: None (occurrence: None)
  Receive Date: 20070822
  Receipt Date: 20070814
  Transmission Date: 20080115
  Serious: Yes (Life-Threatening, Hospitalization, Other)
  Sender: FDA-Public Use
  Company Number: JP-SHR-JP-2007-029049

PATIENT
  Age: 59 Year
  Sex: Female

DRUGS (2)
  1. MAGNEVIST [Suspect]
     Dosage: 7 ML, 1 DOSE
     Route: 042
     Dates: start: 20070806, end: 20070806
  2. SODIUM CHLORIDE [Concomitant]
     Dosage: UNK, 1 DOSE
     Dates: start: 20070806, end: 20070806

REACTIONS (4)
  - CARDIO-RESPIRATORY ARREST [None]
  - CONVULSION [None]
  - HYPOXIC ENCEPHALOPATHY [None]
  - VENTRICULAR FIBRILLATION [None]
